FAERS Safety Report 9128090 (Version 3)
Quarter: 2013Q3

REPORT INFORMATION
  Report Type: Spontaneous
  Country: FR (occurrence: FR)
  Receive Date: 20130228
  Receipt Date: 20130816
  Transmission Date: 20140515
  Serious: Yes (Life-Threatening)
  Sender: FDA-Public Use
  Company Number: FR-SANOFI-AVENTIS-2013SA017038

PATIENT
  Age: 72 Year
  Sex: Female

DRUGS (16)
  1. PROFENID [Suspect]
     Indication: PRODUCT USED FOR UNKNOWN INDICATION
     Route: 048
     Dates: start: 20120418, end: 20120419
  2. LOVENOX [Suspect]
     Indication: THROMBOSIS PROPHYLAXIS
     Route: 048
     Dates: start: 20120415, end: 20120420
  3. METFORMIN [Suspect]
     Indication: DIABETES MELLITUS
     Route: 048
     Dates: start: 20120417, end: 20120420
  4. GLUCOPHAGE [Concomitant]
     Indication: DIABETES MELLITUS
     Dosage: STRENGTH: 850 MG
     Route: 048
     Dates: end: 20120416
  5. ALDALIX [Concomitant]
     Dosage: STRENGTH: 50 MG/20 MG
     Route: 048
     Dates: end: 20120424
  6. COVERSYL [Concomitant]
     Dosage: STRENGTH: 10 MG
     Route: 048
     Dates: end: 20120420
  7. GLUCOR [Concomitant]
     Indication: DIABETES MELLITUS
     Dosage: STRENGTH: 100 MG
     Route: 048
     Dates: end: 20120420
  8. NOVORAPID [Concomitant]
     Indication: DIABETES MELLITUS
     Route: 058
     Dates: start: 20120416, end: 20120420
  9. LANTUS SOLOSTAR [Concomitant]
     Indication: DIABETES MELLITUS
     Route: 058
     Dates: end: 20120419
  10. DAFALGAN [Concomitant]
     Dosage: STRENGTH: 1 G
     Route: 048
     Dates: start: 20120418
  11. INEXIUM [Concomitant]
     Dosage: STRENGTH: 40 MG
     Route: 048
     Dates: start: 20120417, end: 20120420
  12. XALACOM [Concomitant]
     Route: 047
  13. PROFENID [Concomitant]
  14. SKENAN [Concomitant]
  15. MORPHINE [Concomitant]
     Dates: start: 20120416, end: 20120417
  16. CRESTOR [Concomitant]

REACTIONS (4)
  - Respiratory distress [Recovered/Resolved]
  - Hyperventilation [Recovered/Resolved]
  - Rash [Recovered/Resolved]
  - Angioedema [Recovered/Resolved]
